FAERS Safety Report 5596537-2 (Version None)
Quarter: 2008Q1

REPORT INFORMATION
  Report Type: 
  Country: None (occurrence: None)
  Receive Date: 20080118
  Receipt Date: 20080108
  Transmission Date: 20080703
  Serious: Yes (Other)
  Sender: FDA-Public Use
  Company Number: US-PFIZER INC-2008002152

PATIENT
  Age: 54 Year
  Sex: Female

DRUGS (10)
  1. SUTENT [Suspect]
     Dosage: DAILY DOSE:50MG-FREQ:DAILY
     Route: 048
     Dates: start: 20070307, end: 20070917
  2. AVASTIN [Suspect]
     Indication: METASTATIC RENAL CELL CARCINOMA
     Route: 042
     Dates: start: 20070306, end: 20070906
  3. ALPRAZOLAM [Concomitant]
  4. ACETAMINOPHEN [Concomitant]
  5. OMEPRAZOLE [Concomitant]
  6. DOCUSATE SODIUM [Concomitant]
  7. ALMAGATE [Concomitant]
  8. BISMUTH [Concomitant]
  9. NORVASC [Concomitant]
  10. LEVOTHYROXINE SODIUM [Concomitant]

REACTIONS (1)
  - THROMBOTIC MICROANGIOPATHY [None]
